FAERS Safety Report 9904368 (Version 3)
Quarter: 2014Q1

REPORT INFORMATION
  Report Type: Spontaneous
  Country: FI (occurrence: FI)
  Receive Date: 20140218
  Receipt Date: 20140221
  Transmission Date: 20141002
  Serious: Yes (Death)
  Sender: FDA-Public Use
  Company Number: FI-SA-2014SA016169

PATIENT
  Age: 80 Year
  Sex: Male

DRUGS (3)
  1. KLEXANE [Suspect]
     Indication: CARDIAC DISORDER
     Dosage: DOSE: 80MG AS A SINGLE DOSE
     Route: 058
  2. CORTICOSTEROID NOS [Concomitant]
     Indication: ASTHMA
     Dosage: FORM: PRESSURISED INHALATIONS
  3. ACETYLSALICYLIC ACID [Concomitant]
     Indication: CARDIAC DISORDER
     Dosage: 250 MG AS A SINGLE DOSE

REACTIONS (1)
  - Death [Fatal]
